FAERS Safety Report 12203509 (Version 1)
Quarter: 2016Q1

REPORT INFORMATION
  Report Type: Spontaneous
  Country: US (occurrence: None)
  Receive Date: 20160322
  Receipt Date: 20160322
  Transmission Date: 20160526
  Serious: No
  Sender: FDA-Public Use
  Company Number: None

PATIENT
  Age: 45 Year
  Sex: Female
  Weight: 44.91 kg

DRUGS (6)
  1. SINGULAIR [Suspect]
     Active Substance: MONTELUKAST SODIUM
     Indication: ASTHMA
     Dosage: 1 ONCE DAILY
     Route: 048
  2. SINGULAIR [Suspect]
     Active Substance: MONTELUKAST SODIUM
     Indication: SINUS DISORDER
     Dosage: 1 ONCE DAILY
     Route: 048
  3. MULTI [Concomitant]
     Indication: SINUS DISORDER
     Dosage: 1 ONCE DAILY TAKEN BY MOUTH
     Route: 048
  4. MULTI [Concomitant]
     Indication: MULTIPLE ALLERGIES
     Dosage: 1 ONCE DAILY TAKEN BY MOUTH
     Route: 048
  5. SINGULAIR [Suspect]
     Active Substance: MONTELUKAST SODIUM
     Indication: MULTIPLE ALLERGIES
     Dosage: 1 ONCE DAILY
     Route: 048
  6. MULTI [Concomitant]
     Indication: ASTHMA
     Dosage: 1 ONCE DAILY TAKEN BY MOUTH
     Route: 048

REACTIONS (3)
  - Restlessness [None]
  - Anxiety [None]
  - Insomnia [None]

NARRATIVE: CASE EVENT DATE: 20150311
